FAERS Safety Report 9702221 (Version 3)
Quarter: 2014Q1

REPORT INFORMATION
  Report Type: Spontaneous
  Country: US (occurrence: US)
  Receive Date: 20131121
  Receipt Date: 20140205
  Transmission Date: 20141002
  Serious: Yes (Other)
  Sender: FDA-Public Use
  Company Number: US-BAYER-2013-141029

PATIENT
  Age: 34 Year
  Sex: Female
  Weight: 98.87 kg

DRUGS (5)
  1. MIRENA [Suspect]
     Dosage: 20 MCG/24HR, CONT
     Route: 015
     Dates: start: 20110403, end: 20130315
  2. SYNTHROID [Concomitant]
     Dosage: 150 MCG
     Route: 048
  3. MICARDIS [Concomitant]
     Dosage: 90 MG, UNK
     Route: 048
  4. METOPROLOL [Concomitant]
     Dosage: 25 MG, UNK
     Route: 048
  5. EDARBYCLOR [Concomitant]
     Dosage: 80 MG, UNK
     Route: 048

REACTIONS (8)
  - Embedded device [None]
  - Injury [None]
  - Pain [None]
  - Emotional distress [None]
  - Anhedonia [None]
  - Psychogenic pain disorder [None]
  - Abdominal pain [None]
  - Genital haemorrhage [None]
